FAERS Safety Report 5512384-1 (Version None)
Quarter: 2007Q4

REPORT INFORMATION
  Report Type: 
  Country: None (occurrence: None)
  Receive Date: 20071112
  Receipt Date: 20071105
  Transmission Date: 20080405
  Serious: Yes (Hospitalization, Other)
  Sender: FDA-Public Use
  Company Number: JP-BRACCO-BRO-012241

PATIENT
  Age: 60 Year
  Sex: Male

DRUGS (6)
  1. IOPAMIDOL [Suspect]
     Indication: METASTASES TO LUNG
     Dosage: 1.5 ML/SEC
     Route: 042
     Dates: start: 20071015, end: 20071015
  2. IOPAMIDOL [Suspect]
     Dosage: 1.5 ML/SEC
     Route: 042
     Dates: start: 20071015, end: 20071015
  3. IMUNACE [Concomitant]
     Route: 050
     Dates: start: 20051206, end: 20071010
  4. OIF [Concomitant]
     Route: 050
     Dates: start: 20060424
  5. FAMOTIDINE [Concomitant]
     Route: 048
     Dates: start: 20060408
  6. FERO-GRADUMET [Concomitant]
     Route: 048
     Dates: start: 20060520

REACTIONS (1)
  - SHOCK [None]
